FAERS Safety Report 25859862 (Version 1)
Quarter: 2025Q3

REPORT INFORMATION
  Report Type: Spontaneous
  Country: EU (occurrence: EU)
  Receive Date: 20250929
  Receipt Date: 20250929
  Transmission Date: 20251020
  Serious: Yes (Other)
  Sender: AMGEN
  Company Number: EU-AMGEN-ESPSP2025191404

PATIENT
  Age: 66 Year
  Sex: Male

DRUGS (5)
  1. ADALIMUMAB [Suspect]
     Active Substance: ADALIMUMAB
     Indication: Psoriasis
     Route: 065
  2. CORTICOSTEROID NOS [Concomitant]
     Active Substance: CORTICOSTEROID NOS
     Route: 061
  3. ACITRETIN [Concomitant]
     Active Substance: ACITRETIN
  4. METHOTREXATE [Concomitant]
     Active Substance: METHOTREXATE
  5. PSORALEN [Concomitant]
     Active Substance: PSORALEN

REACTIONS (2)
  - Cutaneous T-cell lymphoma [Unknown]
  - Therapy non-responder [Unknown]
